FAERS Safety Report 10225455 (Version 1)
Quarter: 2014Q2

REPORT INFORMATION
  Report Type: Spontaneous
  Country: US (occurrence: US)
  Receive Date: 20140609
  Receipt Date: 20140609
  Transmission Date: 20141212
  Serious: No
  Sender: FDA-Public Use
  Company Number: US-ASTELLAS-2014US003342

PATIENT
  Age: 47 Year
  Sex: Female

DRUGS (1)
  1. PROGRAF [Suspect]
     Indication: HEART TRANSPLANT
     Dosage: 4.5 MG (2.5MG IN AM AND 2MG IN PM)
     Route: 048
     Dates: start: 20130724

REACTIONS (1)
  - Alopecia [Unknown]
